FAERS Safety Report 5311711-8 (Version None)
Quarter: 2007Q2

REPORT INFORMATION
  Report Type: 
  Country: None (occurrence: None)
  Receive Date: 20070426
  Receipt Date: 20070426
  Transmission Date: 20071010
  Serious: Yes (Hospitalization)
  Sender: FDA-Public Use
  Company Number: None

PATIENT
  Age: 59 Year
  Sex: Male

DRUGS (1)
  1. PROPAFENONE HCL [Suspect]
     Indication: ATRIAL FIBRILLATION
     Dosage: 225 MG BID PO
     Route: 048
     Dates: start: 20070105, end: 20070118

REACTIONS (3)
  - ASTHENIA [None]
  - DIZZINESS [None]
  - PALPITATIONS [None]
